FAERS Safety Report 6097874-8 (Version None)
Quarter: 2009Q1

REPORT INFORMATION
  Report Type: 
  Country: None (occurrence: None)
  Receive Date: 20090227
  Receipt Date: 20090223
  Transmission Date: 20090719
  Serious: Yes (Other)
  Sender: FDA-Public Use
  Company Number: US-ALLERGAN-0809193US

PATIENT
  Sex: Female

DRUGS (3)
  1. BOTOX COSMETIC [Suspect]
     Indication: SKIN WRINKLING
     Dosage: 36 UNITS, SINGLE
     Route: 030
     Dates: start: 20080714, end: 20080714
  2. BOTOX COSMETIC [Suspect]
  3. PHENTERMINE [Concomitant]
     Indication: OBESITY

REACTIONS (30)
  - ABDOMINAL PAIN [None]
  - ANXIETY [None]
  - DARK CIRCLES UNDER EYES [None]
  - DIARRHOEA [None]
  - DRY EYE [None]
  - EYE DISORDER [None]
  - EYE IRRITATION [None]
  - EYE PAIN [None]
  - EYE SWELLING [None]
  - EYELID OEDEMA [None]
  - EYELID PTOSIS [None]
  - FACIAL PAIN [None]
  - FACIAL PALSY [None]
  - FATIGUE [None]
  - INJECTION SITE PAIN [None]
  - INSOMNIA [None]
  - LACRIMATION INCREASED [None]
  - MALAISE [None]
  - MENTAL IMPAIRMENT [None]
  - MIOSIS [None]
  - MUSCULAR WEAKNESS [None]
  - OCULAR HYPERAEMIA [None]
  - OCULAR ICTERUS [None]
  - OVERDOSE [None]
  - PAIN [None]
  - PARAESTHESIA [None]
  - SWELLING [None]
  - VISION BLURRED [None]
  - VISUAL ACUITY REDUCED [None]
  - YELLOW SKIN [None]
